FAERS Safety Report 5160218-X (Version None)
Quarter: 2006Q4

REPORT INFORMATION
  Report Type: 
  Country: None (occurrence: None)
  Receive Date: 20061120
  Receipt Date: 20061031
  Transmission Date: 20070319
  Serious: Yes (Death)
  Sender: FDA-Public Use
  Company Number: 2006CT000841

PATIENT
  Age: 80 Year
  Sex: Female
  Weight: 58.9676 kg

DRUGS (8)
  1. VENTAVIS [Suspect]
     Indication: PULMONARY HYPERTENSION
     Dosage: 5 UG;6XD;IH
     Route: 055
     Dates: start: 20050812, end: 20060825
  2. SYNTHROID [Concomitant]
  3. ATORVASTATIN CALCIUM [Concomitant]
  4. ATENOLOL [Concomitant]
  5. NIASPAN [Concomitant]
  6. ACTONEL [Concomitant]
  7. MIACALCIN [Concomitant]
  8. TRACLEER [Concomitant]

REACTIONS (1)
  - SUDDEN DEATH [None]
